FAERS Safety Report 11521057 (Version 1)
Quarter: 2015Q3

REPORT INFORMATION
  Report Type: Spontaneous
  Country: US (occurrence: US)
  Receive Date: 20150918
  Receipt Date: 20150918
  Transmission Date: 20151125
  Serious: No
  Sender: FDA-Public Use
  Company Number: US-ROCHE-737764

PATIENT
  Age: 41 Year
  Sex: Male

DRUGS (2)
  1. RIBASPHERE [Suspect]
     Active Substance: RIBAVIRIN
     Indication: HEPATITIS C
     Route: 065
  2. PEGASYS [Suspect]
     Active Substance: PEGINTERFERON ALFA-2A
     Indication: HEPATITIS C
     Dosage: FORM: PRE-FILLED SYRINGE
     Route: 065

REACTIONS (6)
  - Diarrhoea [Unknown]
  - Back pain [Unknown]
  - Influenza like illness [Unknown]
  - Pain in extremity [Unknown]
  - Vomiting [Unknown]
  - Feeling hot [Unknown]

NARRATIVE: CASE EVENT DATE: 20101021
